FAERS Safety Report 5448048-2 (Version None)
Quarter: 2007Q3

REPORT INFORMATION
  Report Type: 
  Country: None (occurrence: None)
  Receive Date: 20070910
  Receipt Date: 20070907
  Transmission Date: 20080115
  Serious: Yes (Hospitalization)
  Sender: FDA-Public Use
  Company Number: CH-MERCK-0709CHE00005

PATIENT
  Age: 63 Year
  Sex: Female

DRUGS (13)
  1. PRIMAXIN [Suspect]
     Indication: BACTERIAL INFECTION
     Route: 042
     Dates: start: 20070316
  2. AZATHIOPRINE SODIUM [Suspect]
     Indication: IMMUNOSUPPRESSANT DRUG THERAPY
     Route: 048
     Dates: start: 20070315, end: 20070323
  3. SULFAMETHOXAZOLE AND TRIMETHOPRIM [Suspect]
     Indication: BACTERIAL INFECTION
     Route: 048
     Dates: start: 20070315, end: 20070323
  4. NOXAFIL [Suspect]
     Indication: BRONCHOPULMONARY ASPERGILLOSIS
     Route: 048
     Dates: start: 20070320, end: 20070323
  5. INSULIN ASPART [Concomitant]
     Indication: TYPE 1 DIABETES MELLITUS
     Route: 058
  6. MYCOPHENOLATE SODIUM [Concomitant]
     Indication: IMMUNOSUPPRESSANT DRUG THERAPY
     Route: 048
  7. TACROLIMUS [Concomitant]
     Indication: IMMUNOSUPPRESSANT DRUG THERAPY
     Route: 048
  8. PREDNISONE TAB [Concomitant]
     Indication: IMMUNOSUPPRESSANT DRUG THERAPY
     Route: 048
  9. IRBESARTAN [Concomitant]
     Indication: ESSENTIAL HYPERTENSION
     Route: 048
  10. TORSEMIDE [Concomitant]
     Indication: DIURETIC THERAPY
     Route: 048
  11. ASPIRIN [Concomitant]
     Indication: PROPHYLAXIS
     Route: 048
  12. ACENOCOUMAROL [Concomitant]
     Indication: ANTICOAGULANT THERAPY
     Route: 048
  13. ESOMEPRAZOLE MAGNESIUM [Concomitant]
     Indication: GASTRODUODENITIS
     Route: 048

REACTIONS (1)
  - HEPATOCELLULAR DAMAGE [None]
